FAERS Safety Report 8115334-7 (Version None)
Quarter: 2012Q1

REPORT INFORMATION
  Report Type: 
  Country: None (occurrence: None)
  Receive Date: 20120206
  Receipt Date: 20120206
  Transmission Date: 20120608
  Serious: Yes (Hospitalization, Other)
  Sender: FDA-Public Use
  Company Number: None

PATIENT
  Age: 59 Year
  Sex: Female
  Weight: 129.8 kg

DRUGS (2)
  1. XARELTO [Suspect]
     Indication: THROMBOSIS PROPHYLAXIS
     Dosage: 10MG
     Route: 048
     Dates: start: 20120124, end: 20120128
  2. XARELTO [Suspect]
     Indication: KNEE ARTHROPLASTY
     Dosage: 10MG
     Route: 048
     Dates: start: 20120124, end: 20120128

REACTIONS (1)
  - EMBOLISM VENOUS [None]
